FAERS Safety Report 9840372 (Version 1)
Quarter: 2013Q4

REPORT INFORMATION
  Report Type: Spontaneous
  Country: US (occurrence: None)
  Receive Date: 20131211
  Receipt Date: 20131211
  Transmission Date: 20140711
  Serious: No
  Sender: FDA-Public Use
  Company Number: ALL1-2012-04749

PATIENT
  Age: 55 Year
  Sex: Female
  Weight: 84.8 kg

DRUGS (9)
  1. FIRAZYR [Suspect]
     Indication: HEREDITARY ANGIOEDEMA
     Route: 058
     Dates: start: 20120411
  2. ALPRAZOLAM (ALPRAZOLAM) [Concomitant]
  3. DIVIGEL (ESTRADIOL) [Concomitant]
  4. OMEPRAZOLE (OMEPRAZOLE) [Concomitant]
  5. BENZONATATE (BENZONATATE) [Concomitant]
  6. ZYRTEC (CETIRIZINE HYDROCHLORIDE) [Concomitant]
  7. PROAIR (SALBUTAMOL SULFATE) [Concomitant]
  8. HYDROCODONE (HYDROCODONE) [Concomitant]
  9. QVAR (BECLOMETASONE DIPROPIONATE) [Concomitant]

REACTIONS (2)
  - Diarrhoea [None]
  - Abdominal discomfort [None]
